FAERS Safety Report 4905458-7 (Version None)
Quarter: 2006Q1

REPORT INFORMATION
  Report Type: 
  Country: None (occurrence: None)
  Receive Date: 20060208
  Receipt Date: 20051220
  Transmission Date: 20060701
  Serious: Yes (Hospitalization)
  Sender: FDA-Public Use
  Company Number: US-BRISTOL-MYERS SQUIBB COMPANY-13223862

PATIENT
  Age: 58 Year
  Sex: Male

DRUGS (4)
  1. CETUXIMAB [Suspect]
     Indication: OESOPHAGEAL CARCINOMA
     Dosage: CHEMORADIATION 11-OCT-17-NOV-05,DAY 1 400MG/M2 THEN 250 MG/M2 DAY 8,15,22,29,36-TOTAL OF 3035.5 MG.
     Route: 042
  2. PACLITAXEL [Suspect]
     Indication: OESOPHAGEAL CARCINOMA
     Dosage: CHEMORADIATION 11-OCT-17-NOV-05,50 MG/M2 DAY 1,8,15,22,36 FOR A TOTAL OF 551 MG.DAY 29 HELD.
  3. CARBOPLATIN [Suspect]
     Indication: OESOPHAGEAL CARCINOMA
     Dosage: CHEMORADIATION 11-OCT-17-NOV-05,DOSE 2 AUC, DAY 8,15,22,36 FOR A TOTAL OF 1487 MG.DAY 29 HELD.
  4. RADIATION THERAPY [Suspect]
     Indication: OESOPHAGEAL CARCINOMA
     Dates: start: 20051011, end: 20051117

REACTIONS (2)
  - DEHYDRATION [None]
  - DYSPHAGIA [None]
